FAERS Safety Report 23687409 (Version 1)
Quarter: 2024Q1

REPORT INFORMATION
  Report Type: Spontaneous
  Country: IT (occurrence: IT)
  Receive Date: 20240329
  Receipt Date: 20240329
  Transmission Date: 20240410
  Serious: Yes (Other)
  Sender: FDA-Public Use
  Company Number: None

PATIENT
  Age: 59 Year
  Sex: Male

DRUGS (13)
  1. EYLEA [Suspect]
     Active Substance: AFLIBERCEPT
     Indication: Choroidal neovascularisation
     Dosage: 1 DF, ONCE, 40 MG/ML
     Route: 031
     Dates: start: 20211108, end: 20211108
  2. EYLEA [Suspect]
     Active Substance: AFLIBERCEPT
     Dosage: 1 DF, ONCE, 40 MG/ML
     Route: 031
     Dates: start: 20220321, end: 20220321
  3. EYLEA [Suspect]
     Active Substance: AFLIBERCEPT
     Dosage: 1 DF, ONCE, 40 MG/ML
     Route: 031
     Dates: start: 20220627, end: 20220627
  4. EYLEA [Suspect]
     Active Substance: AFLIBERCEPT
     Dosage: 1 DF, ONCE, 40 MG/ML
     Route: 031
     Dates: start: 20220822, end: 20220822
  5. EYLEA [Suspect]
     Active Substance: AFLIBERCEPT
     Dosage: 1 DF, ONCE, 40 MG/ML
     Route: 031
     Dates: start: 20220929, end: 20220929
  6. EYLEA [Suspect]
     Active Substance: AFLIBERCEPT
     Dosage: 1 DF, ONCE, 40 MG/ML
     Route: 031
     Dates: start: 20221122, end: 20221122
  7. EYLEA [Suspect]
     Active Substance: AFLIBERCEPT
     Dosage: 1 DF, ONCE, 40 MG/ML
     Route: 031
     Dates: start: 20230207, end: 20230207
  8. EYLEA [Suspect]
     Active Substance: AFLIBERCEPT
     Dosage: 1 DF, ONCE, 40 MG/ML
     Route: 031
     Dates: start: 20230406, end: 20230406
  9. EYLEA [Suspect]
     Active Substance: AFLIBERCEPT
     Dosage: 1 DF, ONCE, 40 MG/ML
     Route: 031
     Dates: start: 20230626, end: 20230626
  10. EYLEA [Suspect]
     Active Substance: AFLIBERCEPT
     Dosage: 1 DF, ONCE, 40 MG/ML
     Route: 031
     Dates: start: 20230822, end: 20230822
  11. EYLEA [Suspect]
     Active Substance: AFLIBERCEPT
     Dosage: 1 DF, ONCE, 40 MG/ML
     Route: 031
     Dates: start: 20231024, end: 20231024
  12. EYLEA [Suspect]
     Active Substance: AFLIBERCEPT
     Dosage: 1 DF, ONCE, 40 MG/ML
     Route: 031
     Dates: start: 20240116
  13. NEBIVOLOL HYDROCHLORIDE [Concomitant]
     Active Substance: NEBIVOLOL HYDROCHLORIDE
     Indication: Hypertension
     Dosage: 2.5 MG, QD
     Route: 048

REACTIONS (3)
  - Choroidal neovascularisation [Not Recovered/Not Resolved]
  - Subretinal fluid [Not Recovered/Not Resolved]
  - Therapeutic product effect decreased [Not Recovered/Not Resolved]

NARRATIVE: CASE EVENT DATE: 20240228
